FAERS Safety Report 6588393-0 (Version None)
Quarter: 2010Q1

REPORT INFORMATION
  Report Type: 
  Country: None (occurrence: None)
  Receive Date: 20100218
  Receipt Date: 20091112
  Transmission Date: 20100710
  Serious: Yes (Other)
  Sender: FDA-Public Use
  Company Number: US-ALLERGAN-0913093US

PATIENT
  Age: 25 Year
  Sex: Female

DRUGS (7)
  1. BOTOX [Suspect]
     Indication: TORTICOLLIS
     Dosage: 300 UNITS, SINGLE
     Route: 030
     Dates: start: 20090901, end: 20090901
  2. BOTOX [Suspect]
     Indication: MIGRAINE
  3. TYLENOL-500 [Concomitant]
  4. VICODIN [Concomitant]
  5. MULTI-VITAMINS [Concomitant]
  6. INDOCIN [Concomitant]
     Indication: PAIN
  7. MAXALT [Concomitant]

REACTIONS (5)
  - BACK PAIN [None]
  - HEADACHE [None]
  - MUSCULAR WEAKNESS [None]
  - MUSCULOSKELETAL PAIN [None]
  - NECK PAIN [None]
